FAERS Safety Report 24618894 (Version 1)
Quarter: 2024Q4

REPORT INFORMATION
  Report Type: Spontaneous
  Country: DE (occurrence: DE)
  Receive Date: 20241114
  Receipt Date: 20241114
  Transmission Date: 20250114
  Serious: Yes (Death, Life-Threatening, Hospitalization, Other)
  Sender: UCB
  Company Number: DE-UCBSA-2024058182

PATIENT

DRUGS (8)
  1. LEVETIRACETAM [Suspect]
     Active Substance: LEVETIRACETAM
     Indication: Epilepsy
     Dosage: 1 G 3X/ DAY
  2. LACOSAMIDE [Suspect]
     Active Substance: LACOSAMIDE
     Indication: Epilepsy
     Dosage: 200 MILLIGRAM, 2X/DAY (BID)
  3. ACYCLOVIR [Concomitant]
     Active Substance: ACYCLOVIR
     Indication: Pleocytosis
     Dosage: 750 MILLIGRAM, 3X/DAY (TID)
  4. CEFTRIAXONE [Concomitant]
     Active Substance: CEFTRIAXONE
     Indication: Pleocytosis
     Dosage: 2 GRAM, ONCE DAILY (QD)
  5. PREDNISOLONE [Concomitant]
     Active Substance: PREDNISOLONE
     Indication: Encephalitis autoimmune
     Dosage: 1000 MILLIGRAM FOR 2 DAYS
  6. PREDNISOLONE [Concomitant]
     Active Substance: PREDNISOLONE
     Dosage: 500 MILLIGRAM FOR 4 DAYS
  7. AMPICILLIN [Concomitant]
     Active Substance: AMPICILLIN
     Indication: Pleocytosis
     Dosage: 2 GRAM, 6X/DAY
  8. CIPROFLOXACIN [Concomitant]
     Active Substance: CIPROFLOXACIN
     Indication: Pleocytosis
     Dosage: 400 MILLIGRAM, 2X/DAY (BID)

REACTIONS (2)
  - Condition aggravated [Fatal]
  - Drug ineffective [Unknown]
